FAERS Safety Report 7632466-8 (Version None)
Quarter: 2011Q3

REPORT INFORMATION
  Report Type: 
  Country: None (occurrence: None)
  Receive Date: 20110725
  Receipt Date: 20100915
  Transmission Date: 20111222
  Serious: No
  Sender: FDA-Public Use
  Company Number: US-BRISTOL-MYERS SQUIBB COMPANY-15287386

PATIENT
  Age: 83 Year
  Sex: Male

DRUGS (3)
  1. POTASSIUM [Concomitant]
  2. WARFARIN SODIUM [Suspect]
  3. LASIX [Concomitant]

REACTIONS (1)
  - PROTHROMBIN TIME RATIO INCREASED [None]
